FAERS Safety Report 21936867 (Version 1)
Quarter: 2023Q1

REPORT INFORMATION
  Report Type: Spontaneous
  Country: GB (occurrence: GB)
  Receive Date: 20230201
  Receipt Date: 20230201
  Transmission Date: 20230418
  Serious: Yes (Other)
  Sender: FDA-Public Use
  Company Number: None

PATIENT
  Age: 63 Year
  Sex: Female
  Weight: 87 kg

DRUGS (14)
  1. NAPROXEN [Suspect]
     Active Substance: NAPROXEN
     Indication: Product used for unknown indication
     Dosage: 250 MILLIGRAM, BID
     Route: 048
     Dates: start: 20220810
  2. AMLODIPINE [Concomitant]
     Active Substance: AMLODIPINE BESYLATE
     Indication: Blood pressure abnormal
     Dosage: 1 DOSAGE FORM, QD
     Route: 065
     Dates: start: 20220118
  3. ATORVASTATIN [Concomitant]
     Active Substance: ATORVASTATIN
     Indication: Blood cholesterol increased
     Dosage: 1 DOSAGE FORM, QD (EACH NIGHT)
     Route: 065
     Dates: start: 20220118
  4. CARBOCYSTEINE [Concomitant]
     Active Substance: CARBOCYSTEINE
     Indication: Mucosal disorder
     Dosage: 2 DOSAGE FORM, QD
     Route: 065
     Dates: start: 20220118
  5. DOXYCYCLINE [Concomitant]
     Active Substance: DOXYCYCLINE
     Dosage: UNK (TOOK TWO IMMEDIATELY THEN ONE ONCE A DAY)
     Route: 065
     Dates: start: 20220810
  6. ERYTHROMYCIN [Concomitant]
     Active Substance: ERYTHROMYCIN
     Dosage: 1 DOSAGE FORM, QID
     Route: 065
     Dates: start: 20220627, end: 20220704
  7. FENBID [Concomitant]
     Dosage: 1 DOSAGE FORM, TID (APPLY)
     Route: 065
     Dates: start: 20220812
  8. FUROSEMIDE [Concomitant]
     Active Substance: FUROSEMIDE
     Dosage: 1 DOSAGE FORM, QD (EACH MORNING (WATER TABLET))
     Route: 065
     Dates: start: 20220714, end: 20220728
  9. GABAPENTIN [Concomitant]
     Active Substance: GABAPENTIN
     Indication: Neuropathy peripheral
     Dosage: 1 DOSAGE FORM, TID
     Route: 065
     Dates: start: 20220118
  10. MIRTAZAPINE [Concomitant]
     Active Substance: MIRTAZAPINE
     Indication: Depressed mood
     Dosage: 1 DOSAGE FORM, QD (EACH NIGHT)
     Route: 065
     Dates: start: 20220118
  11. PREDNISOLONE [Concomitant]
     Active Substance: PREDNISOLONE
     Dosage: 6 DOSAGE FORM, QD (IN THE MORNING)
     Route: 065
     Dates: start: 20220810, end: 20220815
  12. ALBUTEROL [Concomitant]
     Active Substance: ALBUTEROL
     Dosage: PRN (ONE OR TWO PUFFS UPTO FOUR)
     Route: 055
     Dates: start: 20220414
  13. THIAMINE [Concomitant]
     Active Substance: THIAMINE
     Dosage: 1 DOSAGE FORM, QD
     Route: 065
     Dates: start: 20220118
  14. BECLOMETHASONE DIPROPIONATE\FORMOTEROL FUMARATE\GLYCOPYRROLATE [Concomitant]
     Active Substance: BECLOMETHASONE DIPROPIONATE\FORMOTEROL FUMARATE\GLYCOPYRROLATE
     Dosage: 2 DOSAGE FORM, TID
     Route: 055
     Dates: start: 20220118

REACTIONS (2)
  - Eye pruritus [Recovering/Resolving]
  - Pruritus [Recovering/Resolving]
